FAERS Safety Report 5897835-5 (Version None)
Quarter: 2008Q3

REPORT INFORMATION
  Report Type: 
  Country: None (occurrence: None)
  Receive Date: 20080924
  Receipt Date: 20080924
  Transmission Date: 20090109
  Serious: Yes (Other)
  Sender: FDA-Public Use
  Company Number: None

PATIENT
  Age: 44 Year
  Sex: Female
  Weight: 91.6266 kg

DRUGS (1)
  1. ADVAIR DISKUS 100/50 [Suspect]
     Indication: ASTHMA
     Dosage: 1 PUFF 2 X DAILY, MAYBE 6 MONTHS

REACTIONS (4)
  - COUGH [None]
  - DYSPNOEA [None]
  - NO THERAPEUTIC RESPONSE [None]
  - RESPIRATORY DISTRESS [None]
